FAERS Safety Report 8088350-1 (Version None)
Quarter: 2012Q1

REPORT INFORMATION
  Report Type: 
  Country: None (occurrence: None)
  Receive Date: 20120128
  Receipt Date: 20110526
  Transmission Date: 20120608
  Serious: Yes (Other)
  Sender: FDA-Public Use
  Company Number: US-ABBOTT-11P-163-0729259-00

PATIENT
  Sex: Female

DRUGS (10)
  1. HUMIRA [Suspect]
     Indication: RHEUMATOID ARTHRITIS
     Route: 058
     Dates: start: 20090716
  2. PLAQUENIL [Concomitant]
     Indication: RHEUMATOID ARTHRITIS
     Route: 048
  3. LORTAB [Concomitant]
     Indication: PAIN
     Route: 048
  4. NAPROSYN [Concomitant]
     Indication: RHEUMATOID ARTHRITIS
     Route: 048
  5. PREVACID [Concomitant]
     Indication: GASTROOESOPHAGEAL REFLUX DISEASE
     Route: 048
  6. FUROSEMIDE [Concomitant]
     Indication: FLUID RETENTION
     Route: 048
  7. NAPROSYN [Concomitant]
     Indication: PAIN
  8. HUMIRA [Suspect]
     Route: 058
     Dates: start: 20101123
  9. PREVACID [Concomitant]
  10. XANAX [Concomitant]
     Indication: ANXIETY
     Route: 048

REACTIONS (5)
  - RASH [None]
  - VERTIGO [None]
  - PRURITUS [None]
  - HYPOAESTHESIA [None]
  - MALIGNANT MELANOMA [None]
